FAERS Safety Report 5992305-8 (Version None)
Quarter: 2008Q4

REPORT INFORMATION
  Report Type: 
  Country: None (occurrence: None)
  Receive Date: 20081211
  Receipt Date: 20080513
  Transmission Date: 20090506
  Serious: No
  Sender: FDA-Public Use
  Company Number: US-AMGEN-KDL279350

PATIENT
  Sex: Female

DRUGS (2)
  1. ENBREL [Suspect]
     Indication: VASCULITIS
     Route: 058
  2. ENBREL [Suspect]
     Indication: DRUG USE FOR UNKNOWN INDICATION

REACTIONS (6)
  - FATIGUE [None]
  - FEELING HOT [None]
  - FIBROMYALGIA [None]
  - PAIN [None]
  - SINUSITIS [None]
  - UPPER RESPIRATORY TRACT INFECTION [None]
